FAERS Safety Report 18062636 (Version 1)
Quarter: 2020Q3

REPORT INFORMATION
  Report Type: Spontaneous
  Country: DE (occurrence: DE)
  Receive Date: 20200723
  Receipt Date: 20200723
  Transmission Date: 20201103
  Serious: Yes (Hospitalization)
  Sender: FDA-Public Use
  Company Number: DE-BIOGEN-2019BI00798287

PATIENT
  Age: 37 Year
  Sex: Female
  Weight: 55.1 kg

DRUGS (3)
  1. TECFIDERA [Suspect]
     Active Substance: DIMETHYL FUMARATE
     Indication: MULTIPLE SCLEROSIS
     Route: 048
     Dates: start: 2015
  2. TECFIDERA [Suspect]
     Active Substance: DIMETHYL FUMARATE
     Route: 048
     Dates: start: 2015, end: 2016
  3. MIRTAZAPINE. [Concomitant]
     Active Substance: MIRTAZAPINE
     Indication: DEPRESSION
     Route: 065

REACTIONS (10)
  - Chills [Unknown]
  - Multiple sclerosis relapse [Unknown]
  - Drug intolerance [Unknown]
  - Erysipelas [Unknown]
  - Weight increased [Unknown]
  - Pain [Unknown]
  - Ophthalmic herpes zoster [Unknown]
  - Abdominal pain lower [Unknown]
  - Flushing [Unknown]
  - Endometriosis [Unknown]

NARRATIVE: CASE EVENT DATE: 201604
